FAERS Safety Report 4634619-X (Version None)
Quarter: 2005Q2

REPORT INFORMATION
  Report Type: 
  Country: None (occurrence: None)
  Receive Date: 20050411
  Receipt Date: 20050330
  Transmission Date: 20051028
  Serious: Yes (Hospitalization)
  Sender: FDA-Public Use
  Company Number: EM2005-0174

PATIENT
  Age: 53 Year
  Sex: Male
  Weight: 69 kg

DRUGS (9)
  1. MACROLIN [Suspect]
     Indication: HIV INFECTION
     Dosage: SEE IMAGE
     Dates: start: 20030616, end: 20030620
  2. MACROLIN [Suspect]
     Indication: HIV INFECTION
     Dosage: SEE IMAGE
     Dates: start: 20030716, end: 20030720
  3. MACROLIN [Suspect]
     Indication: HIV INFECTION
     Dosage: SEE IMAGE
     Dates: start: 20030916, end: 20030920
  4. MACROLIN [Suspect]
     Indication: HIV INFECTION
     Dosage: SEE IMAGE
     Dates: start: 20031028, end: 20031101
  5. TRIZIVIR [Concomitant]
  6. SUSTIVA [Concomitant]
  7. VALACYCLOVIR HCL [Concomitant]
  8. BACTRIM DS [Concomitant]
  9. OMEPRAZOLE [Concomitant]

REACTIONS (6)
  - COLON CANCER [None]
  - DIARRHOEA [None]
  - METASTASES TO LYMPH NODES [None]
  - NAUSEA [None]
  - PERITONEAL FLUID ANALYSIS ABNORMAL [None]
  - VOMITING [None]
